FAERS Safety Report 14185391 (Version 2)
Quarter: 2018Q4

REPORT INFORMATION
  Report Type: Report from Study
  Country: None (occurrence: SE)
  Receive Date: 20171113
  Receipt Date: 20181212
  Transmission Date: 20190204
  Serious: Yes (Other)
  Sender: FDA-Public Use
  Company Number: SE-ABBVIE-17K-150-2138249-00

PATIENT
  Age: 75 Year
  Sex: Male

DRUGS (6)
  1. DUODOPA [Suspect]
     Active Substance: CARBIDOPA\LEVODOPA
     Route: 050
     Dates: start: 20171127
  2. DUODOPA [Suspect]
     Active Substance: CARBIDOPA\LEVODOPA
     Dosage: MD: 4.0 ML, CD:  3.7 ML/H, XD: 1.5 ML
     Route: 050
     Dates: start: 20171018, end: 20171127
  3. DUODOPA [Suspect]
     Active Substance: CARBIDOPA\LEVODOPA
     Dosage: CURRENT DOSES: MD: 7 ML, CD: 3.1ML/H, XD: INCREASED FROM 2.5 TO 3.0 ML
     Route: 050
     Dates: start: 20181204
  4. DUODOPA [Suspect]
     Active Substance: CARBIDOPA\LEVODOPA
     Indication: PARKINSON^S DISEASE
     Dosage: MD: 4.0 ML, CD:  3.7 ML/H, XD: 1.0 ML
     Route: 050
     Dates: start: 20171009, end: 20171018
  5. MADOPARK QUICK MITE [Suspect]
     Active Substance: BENSERAZIDE HYDROCHLORIDE\LEVODOPA
     Indication: PRODUCT USED FOR UNKNOWN INDICATION
     Route: 065
  6. DUODOPA [Suspect]
     Active Substance: CARBIDOPA\LEVODOPA
     Dosage: 2-3 XD PER DAY. ONLY IN THE AFTERNOON/EVENING
     Route: 050

REACTIONS (5)
  - Drug effect incomplete [Unknown]
  - Fracture [Unknown]
  - Hyperkinesia [Not Recovered/Not Resolved]
  - On and off phenomenon [Unknown]
  - Hypokinesia [Not Recovered/Not Resolved]

NARRATIVE: CASE EVENT DATE: 20171014
